FAERS Safety Report 23827174 (Version 2)
Quarter: 2024Q2

REPORT INFORMATION
  Report Type: Spontaneous
  Country: US (occurrence: None)
  Receive Date: 20240507
  Receipt Date: 20240619
  Transmission Date: 20240716
  Serious: Yes (Other)
  Sender: FDA-Public Use
  Company Number: 2024A101877

PATIENT
  Age: 56 Year
  Sex: Female

DRUGS (1)
  1. FASENRA [Suspect]
     Active Substance: BENRALIZUMAB
     Route: 058
     Dates: start: 20240410

REACTIONS (2)
  - Vasculitis [Recovering/Resolving]
  - Rash [Unknown]

NARRATIVE: CASE EVENT DATE: 20240417
